FAERS Safety Report 6061084-0 (Version None)
Quarter: 2009Q1

REPORT INFORMATION
  Report Type: 
  Country: None (occurrence: None)
  Receive Date: 20090202
  Receipt Date: 20090127
  Transmission Date: 20090719
  Serious: Yes (Hospitalization, Other)
  Sender: FDA-Public Use
  Company Number: CA-ABBOTT-09P-028-0498177-00

PATIENT
  Sex: Female
  Weight: 65.376 kg

DRUGS (1)
  1. HUMIRA [Suspect]
     Indication: RHEUMATOID ARTHRITIS
     Route: 058
     Dates: start: 20080215

REACTIONS (6)
  - ARTHRITIS [None]
  - ARTHROPATHY [None]
  - GAIT DISTURBANCE [None]
  - JOINT CONTRACTURE [None]
  - OSTEONECROSIS [None]
  - PELVIC DEFORMITY [None]
